FAERS Safety Report 6222954-3 (Version None)
Quarter: 2009Q2

REPORT INFORMATION
  Report Type: 
  Country: None (occurrence: None)
  Receive Date: 20090611
  Receipt Date: 20090603
  Transmission Date: 20091009
  Serious: Yes (Hospitalization)
  Sender: FDA-Public Use
  Company Number: US-AVENTIS-200914856US

PATIENT
  Age: 59 Year
  Sex: Male

DRUGS (3)
  1. GLYBURIDE [Suspect]
     Dosage: DOSE: UNK
     Dates: start: 20080101
  2. LANTUS [Suspect]
     Route: 058
     Dates: start: 20090101
  3. LANTUS [Suspect]
     Route: 058
     Dates: start: 20090401, end: 20090101

REACTIONS (4)
  - DRUG INEFFECTIVE [None]
  - HOSPITALISATION [None]
  - LOSS OF CONSCIOUSNESS [None]
  - MEDICATION ERROR [None]
